FAERS Safety Report 5927641-4 (Version None)
Quarter: 2008Q4

REPORT INFORMATION
  Report Type: 
  Country: None (occurrence: None)
  Receive Date: 20081021
  Receipt Date: 20081021
  Transmission Date: 20090506
  Serious: Yes (Hospitalization, Disabling)
  Sender: FDA-Public Use
  Company Number: None

PATIENT
  Age: 30 Year
  Sex: Female
  Weight: 63.5036 kg

DRUGS (1)
  1. MIRENA [Suspect]
     Indication: CONTRACEPTION
     Dosage: INTRAUTERINE
     Route: 015
     Dates: start: 20081014, end: 20081021

REACTIONS (2)
  - COMPLICATION OF DEVICE INSERTION [None]
  - UTERINE RUPTURE [None]
